FAERS Safety Report 15781882 (Version 3)
Quarter: 2019Q1

REPORT INFORMATION
  Report Type: Report from Study
  Country: FR (occurrence: FR)
  Receive Date: 20190102
  Receipt Date: 20190131
  Transmission Date: 20190417
  Serious: Yes (Hospitalization)
  Sender: FDA-Public Use
  Company Number: FR-EISAI MEDICAL RESEARCH-EC-2018-049883

PATIENT
  Age: 68 Year
  Sex: Male
  Weight: 93 kg

DRUGS (13)
  1. NEUPOGEN [Concomitant]
     Active Substance: FILGRASTIM
  2. COVERSYL [Concomitant]
     Active Substance: PERINDOPRIL
  3. LENVATINIB [Suspect]
     Active Substance: LENVATINIB
     Indication: HEPATIC CIRRHOSIS
  4. PEMBROLIZUMAB. [Suspect]
     Active Substance: PEMBROLIZUMAB
     Indication: HEPATIC CIRRHOSIS
  5. HUMALOG [Concomitant]
     Active Substance: INSULIN LISPRO
  6. ALDACTONE [Concomitant]
     Active Substance: SPIRONOLACTONE
  7. LASILIX [Concomitant]
     Active Substance: FUROSEMIDE
  8. MELOXICAM. [Concomitant]
     Active Substance: MELOXICAM
  9. TAHOR [Concomitant]
     Active Substance: ATORVASTATIN CALCIUM
  10. LENVATINIB [Suspect]
     Active Substance: LENVATINIB
     Indication: HEPATOCELLULAR CARCINOMA
     Route: 048
     Dates: start: 20181108, end: 20181220
  11. PEMBROLIZUMAB. [Suspect]
     Active Substance: PEMBROLIZUMAB
     Indication: HEPATOCELLULAR CARCINOMA
     Route: 041
     Dates: start: 20181108, end: 20181220
  12. LANTUS [Concomitant]
     Active Substance: INSULIN GLARGINE
  13. INNOHEP [Concomitant]
     Active Substance: TINZAPARIN SODIUM

REACTIONS (2)
  - Melaena [Recovered/Resolved]
  - Ascites [Recovered/Resolved]

NARRATIVE: CASE EVENT DATE: 20181226
